FAERS Safety Report 13444448 (Version 2)
Quarter: 2017Q3

REPORT INFORMATION
  Report Type: Spontaneous
  Country: FR (occurrence: FR)
  Receive Date: 20170414
  Receipt Date: 20170710
  Transmission Date: 20171127
  Serious: Yes (Death, Congenital Anomaly, Other)
  Sender: FDA-Public Use
  Company Number: FR-PFIZER INC-2017160734

PATIENT
  Age: 1 Day
  Sex: Male
  Weight: 2.4 kg

DRUGS (2)
  1. CYTOTEC [Suspect]
     Active Substance: MISOPROSTOL
     Indication: ABORTION INDUCED
     Dosage: 200 UG, UNK (TOTAL)
     Route: 064
     Dates: start: 200406
  2. MIFEGYNE [Suspect]
     Active Substance: MIFEPRISTONE
     Indication: ABORTION INDUCED
     Dosage: 600 MG, UNK (TOTAL)
     Route: 064
     Dates: start: 200406

REACTIONS (6)
  - Pneumonia aspiration [Fatal]
  - Maternal exposure during pregnancy [Unknown]
  - Cerebellar hypoplasia [Not Recovered/Not Resolved]
  - Dysmorphism [Not Recovered/Not Resolved]
  - Multiple congenital abnormalities [Not Recovered/Not Resolved]
  - Talipes [Not Recovered/Not Resolved]
